FAERS Safety Report 16805196 (Version 1)
Quarter: 2019Q4

REPORT INFORMATION
  Report Type: Spontaneous
  Country: US (occurrence: US)
  Receive Date: 20190913
  Receipt Date: 20190913
  Transmission Date: 20200122
  Serious: Yes (Hospitalization)
  Sender: FDA-Public Use
  Company Number: None

PATIENT
  Age: 61 Year
  Sex: Female

DRUGS (2)
  1. IBRANCE [Suspect]
     Active Substance: PALBOCICLIB
     Indication: BREAST CANCER
     Dosage: 125 MG ORAL FOR 21DAYS 7OFF?
     Route: 048
     Dates: start: 20180122
  2. NONE LISTED [Concomitant]

REACTIONS (2)
  - Therapy cessation [None]
  - Surgery [None]
